FAERS Safety Report 9763369 (Version 1)
Quarter: 2013Q4

REPORT INFORMATION
  Report Type: Spontaneous
  Country: US (occurrence: US)
  Receive Date: 20131216
  Receipt Date: 20131216
  Transmission Date: 20140711
  Serious: No
  Sender: FDA-Public Use
  Company Number: US-BIOGENIDEC-2013BI106661

PATIENT
  Sex: Female

DRUGS (12)
  1. TECFIDERA [Suspect]
     Indication: MULTIPLE SCLEROSIS
     Route: 048
     Dates: start: 20130723
  2. AMITRIPTYLINE HCL [Concomitant]
  3. ASPIRIN [Concomitant]
  4. ATENOLOL [Concomitant]
  5. HYDROCHLORTHIAZIDE [Concomitant]
  6. IBUPROFEN [Concomitant]
  7. MECLIZINE HCL [Concomitant]
  8. METOPROLOL TARTRATE [Concomitant]
  9. OMEPRAZOLE [Concomitant]
  10. PRILOSEC [Concomitant]
  11. ROPINIROLE HCL [Concomitant]
  12. ZOLPIDEM TARTRATE [Concomitant]

REACTIONS (2)
  - Disease progression [Unknown]
  - Gait disturbance [Unknown]
